FAERS Safety Report 7108944-7 (Version None)
Quarter: 2010Q4

REPORT INFORMATION
  Report Type: 
  Country: None (occurrence: None)
  Receive Date: 20101112
  Receipt Date: 20101103
  Transmission Date: 20110411
  Serious: Yes (Hospitalization)
  Sender: FDA-Public Use
  Company Number: TPG2010A00613

PATIENT
  Age: 68 Year
  Sex: Male

DRUGS (2)
  1. ACTOS [Suspect]
     Indication: PRODUCT USED FOR UNKNOWN INDICATION
     Dosage: 30 MG (30 MG,1 IN 1 D) PER ORAL
     Route: 048
  2. METFORMIN HCL [Concomitant]

REACTIONS (3)
  - BLADDER CANCER [None]
  - NEOPLASM RECURRENCE [None]
  - VISION BLURRED [None]
